FAERS Safety Report 21133341 (Version 1)
Quarter: 2022Q3

REPORT INFORMATION
  Report Type: Spontaneous
  Country: US (occurrence: US)
  Receive Date: 20220726
  Receipt Date: 20220726
  Transmission Date: 20221027
  Serious: No
  Sender: FDA-Public Use
  Company Number: US-PFIZER INC-202201005694

PATIENT
  Age: 65 Year
  Sex: Female
  Weight: 95.25 kg

DRUGS (3)
  1. PAXLOVID [Suspect]
     Active Substance: NIRMATRELVIR\RITONAVIR
     Indication: COVID-19
     Dosage: UNK
     Dates: start: 20220720
  2. METOPROLOL [Concomitant]
     Active Substance: METOPROLOL
     Dosage: 25 MG, 2X/DAY
     Dates: start: 2010
  3. RAMIPRIL [Concomitant]
     Active Substance: RAMIPRIL
     Dosage: 5 MG, 1X/DAY

REACTIONS (8)
  - Oropharyngeal pain [Unknown]
  - Diarrhoea [Unknown]
  - Dry mouth [Unknown]
  - Chest discomfort [Unknown]
  - Dysphonia [Unknown]
  - Hypersensitivity [Unknown]
  - Throat tightness [Unknown]
  - Dysphagia [Unknown]

NARRATIVE: CASE EVENT DATE: 20220721
